FAERS Safety Report 8826452 (Version 1)
Quarter: 2012Q4

REPORT INFORMATION
  Report Type: 
  Country: US (occurrence: US)
  Receive Date: 20121008
  Receipt Date: 20121008
  Transmission Date: 20130627
  Serious: Yes (Other)
  Sender: FDA-Public Use
  Company Number: PHHY2010US45855

PATIENT
  Age: 49 None
  Sex: Female
  Weight: 113 kg

DRUGS (15)
  1. GLEEVEC [Suspect]
     Indication: CHRONIC MYELOID LEUKAEMIA
     Dosage: 400 mg daily
     Route: 048
     Dates: start: 20100622
  2. PROAIR HFA [Concomitant]
  3. OMEPRAZOLE [Concomitant]
  4. SINGULAIR [Concomitant]
  5. DIOVAN [Concomitant]
  6. HYDROCHLOROTHIAZIDE [Concomitant]
  7. METFORMIN [Concomitant]
  8. SYMBICORT TURBUHALER [Concomitant]
  9. DEXLANSOPRAZOLE [Concomitant]
  10. CENTRUM [Concomitant]
  11. DILTIAZEM [Concomitant]
  12. KLOR-CON [Concomitant]
  13. NORVASC [Concomitant]
  14. MVI [Concomitant]
  15. DEXILANT [Concomitant]

REACTIONS (7)
  - Asthma [Not Recovered/Not Resolved]
  - Dyspnoea [Not Recovered/Not Resolved]
  - Nausea [Not Recovered/Not Resolved]
  - Muscle spasms [Not Recovered/Not Resolved]
  - Vomiting [Not Recovered/Not Resolved]
  - Diarrhoea [Not Recovered/Not Resolved]
  - Insomnia [Not Recovered/Not Resolved]
